FAERS Safety Report 4331537-1 (Version None)
Quarter: 2004Q2

REPORT INFORMATION
  Report Type: 
  Country: None (occurrence: None)
  Receive Date: 20040402
  Receipt Date: 20040322
  Transmission Date: 20050107
  Serious: Yes (Other)
  Sender: FDA-Public Use
  Company Number: US-MERCK-0403USA01983

PATIENT
  Age: 30 Year
  Sex: Female

DRUGS (2)
  1. [THERAPY UNSPECIFIED] [Concomitant]
     Route: 065
  2. CRIXIVAN [Suspect]
     Route: 048
     Dates: start: 20040301

REACTIONS (1)
  - ASEPTIC NECROSIS BONE [None]
